FAERS Safety Report 10233697 (Version 2)
Quarter: 2019Q1

REPORT INFORMATION
  Report Type: Spontaneous
  Country: FR (occurrence: FR)
  Receive Date: 20140612
  Receipt Date: 20190304
  Transmission Date: 20190417
  Serious: Yes (Life-Threatening)
  Sender: FDA-Public Use
  Company Number: FR-PFIZER INC-2014159376

PATIENT
  Age: 76 Year
  Sex: Male
  Weight: 61 kg

DRUGS (15)
  1. CEFTRIAXONE. [Concomitant]
     Active Substance: CEFTRIAXONE
     Indication: OBSTRUCTIVE AIRWAYS DISORDER
     Dosage: UNK
     Dates: start: 20140520
  2. COUMADINE [Concomitant]
     Active Substance: WARFARIN SODIUM
  3. XATRAL [Concomitant]
     Active Substance: ALFUZOSIN
  4. LASILIX [Concomitant]
     Active Substance: FUROSEMIDE
  5. VENTOLINE [Concomitant]
     Active Substance: ALBUTEROL
  6. PULMICORT TURBUHALER [Concomitant]
     Active Substance: BUDESONIDE
  7. AMLOR [Concomitant]
     Active Substance: AMLODIPINE BESYLATE
  8. CORDARONE [Concomitant]
     Active Substance: AMIODARONE HYDROCHLORIDE
  9. BRICANYL [Concomitant]
     Active Substance: TERBUTALINE SULFATE
  10. SOLU-MEDROL [Suspect]
     Active Substance: METHYLPREDNISOLONE SODIUM SUCCINATE
     Indication: OBSTRUCTIVE AIRWAYS DISORDER
     Dosage: 1 DF, SINGLE
     Route: 042
     Dates: start: 20140520, end: 20140520
  11. OXEOL [Concomitant]
     Active Substance: BAMBUTEROL HYDROCHLORIDE
  12. DEROXAT [Concomitant]
     Active Substance: PAROXETINE HYDROCHLORIDE
  13. DUOPLAVIN [Concomitant]
     Active Substance: ASPIRIN\CLOPIDOGREL
  14. SPIRIVA [Concomitant]
     Active Substance: TIOTROPIUM BROMIDE MONOHYDRATE
  15. INEXIUM [Concomitant]
     Active Substance: ESOMEPRAZOLE

REACTIONS (2)
  - Bronchospasm [Recovered/Resolved]
  - Rash [Unknown]

NARRATIVE: CASE EVENT DATE: 20140520
